FAERS Safety Report 15505121 (Version 1)
Quarter: 2018Q4

REPORT INFORMATION
  Report Type: Spontaneous
  Country: JP (occurrence: JP)
  Receive Date: 20181016
  Receipt Date: 20181016
  Transmission Date: 20190205
  Serious: Yes (Life-Threatening, Hospitalization)
  Sender: FDA-Public Use
  Company Number: JP-RECORDATI RARE DISEASES INC.-JP-R13005-18-00236

PATIENT
  Age: 31 Year
  Sex: Female

DRUGS (10)
  1. DEXART [Suspect]
     Active Substance: DEXAMETHASONE SODIUM PHOSPHATE
     Indication: PRODUCT USED FOR UNKNOWN INDICATION
     Route: 065
     Dates: start: 20180820, end: 20180820
  2. DEXART [Suspect]
     Active Substance: DEXAMETHASONE SODIUM PHOSPHATE
     Route: 065
     Dates: start: 20180823, end: 20180824
  3. METHOTREXATE. [Suspect]
     Active Substance: METHOTREXATE
     Indication: CHORIOCARCINOMA
     Route: 065
     Dates: start: 20180820
  4. EMEND [Suspect]
     Active Substance: APREPITANT
     Indication: PRODUCT USED FOR UNKNOWN INDICATION
     Route: 065
     Dates: start: 20180820, end: 20180824
  5. GRANISETRON [Suspect]
     Active Substance: GRANISETRON
     Indication: PRODUCT USED FOR UNKNOWN INDICATION
     Route: 065
     Dates: start: 20180820, end: 20180821
  6. GRANISETRON [Suspect]
     Active Substance: GRANISETRON
     Route: 065
     Dates: start: 20180822, end: 20180824
  7. LEUCOVORIN. [Concomitant]
     Active Substance: LEUCOVORIN
     Indication: PRODUCT USED FOR UNKNOWN INDICATION
     Route: 065
     Dates: start: 20180821, end: 20180822
  8. ETOPOSIDE. [Suspect]
     Active Substance: ETOPOSIDE
     Indication: CHORIOCARCINOMA
     Route: 065
     Dates: start: 20180820, end: 20180824
  9. COSMEGEN [Suspect]
     Active Substance: DACTINOMYCIN
     Indication: CHORIOCARCINOMA
     Route: 065
     Dates: start: 20180820, end: 20180824
  10. DEXART [Suspect]
     Active Substance: DEXAMETHASONE SODIUM PHOSPHATE
     Route: 065
     Dates: start: 20180821, end: 20180822

REACTIONS (6)
  - Neutrophil count abnormal [Unknown]
  - Hepatic enzyme increased [Recovered/Resolved]
  - Swelling face [Recovering/Resolving]
  - Facial pain [Recovering/Resolving]
  - White blood cell disorder [Unknown]
  - Rash generalised [Recovering/Resolving]

NARRATIVE: CASE EVENT DATE: 20180825
